FAERS Safety Report 4593964-7 (Version None)
Quarter: 2005Q1

REPORT INFORMATION
  Report Type: 
  Country: None (occurrence: None)
  Receive Date: 20050223
  Receipt Date: 20041013
  Transmission Date: 20050727
  Serious: Yes (Other)
  Sender: FDA-Public Use
  Company Number: 200510144BBE

PATIENT
  Sex: Male

DRUGS (3)
  1. KONYNE [Suspect]
     Dates: start: 19820101, end: 19830101
  2. KONYNE [Suspect]
     Dates: start: 19800101
  3. KONYNE [Suspect]
     Dates: start: 19860101

REACTIONS (2)
  - HEPATITIS B VIRUS [None]
  - HEPATITIS C VIRUS [None]
